FAERS Safety Report 25877517 (Version 2)
Quarter: 2025Q4

REPORT INFORMATION
  Report Type: Spontaneous
  Country: TR (occurrence: TR)
  Receive Date: 20251003
  Receipt Date: 20251007
  Transmission Date: 20260118
  Serious: Yes (Life-Threatening, Hospitalization)
  Sender: PFIZER
  Company Number: TR-MLMSERVICE-20250923-PI650393-00089-1

PATIENT
  Age: 6 Year
  Sex: Male

DRUGS (6)
  1. CLINDAMYCIN HYDROCHLORIDE [Suspect]
     Active Substance: CLINDAMYCIN HYDROCHLORIDE
     Indication: Subperiosteal abscess
     Dosage: UNK
  2. CLINDAMYCIN HYDROCHLORIDE [Suspect]
     Active Substance: CLINDAMYCIN HYDROCHLORIDE
     Indication: Periorbital cellulitis
  3. CEFTRIAXONE [Suspect]
     Active Substance: CEFTRIAXONE
     Indication: Subperiosteal abscess
     Dosage: UNK
  4. CEFTRIAXONE [Suspect]
     Active Substance: CEFTRIAXONE
     Indication: Periorbital cellulitis
  5. VANCOMYCIN [Suspect]
     Active Substance: VANCOMYCIN
     Indication: Subperiosteal abscess
     Dosage: UNK
  6. VANCOMYCIN [Suspect]
     Active Substance: VANCOMYCIN
     Indication: Periorbital cellulitis

REACTIONS (3)
  - Drug reaction with eosinophilia and systemic symptoms [Recovering/Resolving]
  - Pleural effusion [Recovering/Resolving]
  - Pneumonitis [Recovering/Resolving]
